FAERS Safety Report 22212147 (Version 2)
Quarter: 2023Q4

REPORT INFORMATION
  Report Type: Spontaneous
  Country: JP (occurrence: JP)
  Receive Date: 20230414
  Receipt Date: 20231228
  Transmission Date: 20240109
  Serious: Yes (Death, Other)
  Sender: FDA-Public Use
  Company Number: JP-CHUGAI-2022049788

PATIENT
  Age: 58 Year
  Sex: Female
  Weight: 68.1 kg

DRUGS (5)
  1. TECENTRIQ [Suspect]
     Active Substance: ATEZOLIZUMAB
     Indication: Hepatocellular carcinoma
     Dosage: MOST RECENT DOSE: 07/DEC/2021
     Route: 041
     Dates: start: 20201201
  2. AVASTIN [Suspect]
     Active Substance: BEVACIZUMAB
     Indication: Hepatocellular carcinoma
     Dosage: 1021.5 MILLIGRAM, ONCE/3WEEKS
     Route: 065
     Dates: start: 20201201, end: 20210202
  3. AVASTIN [Suspect]
     Active Substance: BEVACIZUMAB
     Dosage: 540 MILLIGRAM, ONCE/3WEEKS
     Route: 065
     Dates: start: 20210203, end: 20210506
  4. AVASTIN [Suspect]
     Active Substance: BEVACIZUMAB
     Dosage: 262.5 MILLIGRAM, ONCE/3WEEKS
     Route: 065
     Dates: start: 20210507, end: 20210601
  5. AVASTIN [Suspect]
     Active Substance: BEVACIZUMAB
     Dosage: 126 MILLIGRAM, ONCE/3WEEKS
     Route: 065
     Dates: start: 20210602, end: 20211207

REACTIONS (5)
  - Hepatic function abnormal [Unknown]
  - Hepatocellular carcinoma [Fatal]
  - Blood bilirubin increased [Not Recovered/Not Resolved]
  - Platelet count decreased [Recovered/Resolved]
  - Alanine aminotransferase increased [Recovered/Resolved]

NARRATIVE: CASE EVENT DATE: 20201203
